FAERS Safety Report 18677471 (Version 2)
Quarter: 2020Q4

REPORT INFORMATION
  Report Type: Report from Study
  Country: US (occurrence: US)
  Receive Date: 20201229
  Receipt Date: 20201231
  Transmission Date: 20210114
  Serious: Yes (Hospitalization, Disabling)
  Sender: FDA-Public Use
  Company Number: US-GLAXOSMITHKLINE-US2020GSK254269

PATIENT
  Age: 69 Year
  Sex: Female
  Weight: 74.4 kg

DRUGS (10)
  1. ALPRAZOLAM. [Concomitant]
     Active Substance: ALPRAZOLAM
     Dosage: 0.5 MG
  2. PANCRELIPASE. [Concomitant]
     Active Substance: PANCRELIPASE
     Dosage: 4000-76000-120000 UNIT PER DR CAPSULE 48000 UNITS OF LIPASE
  3. SODIUM CHLORIDE. [Concomitant]
     Active Substance: SODIUM CHLORIDE
     Dosage: 100 ML
     Route: 042
  4. OXYCODONE TABLET [Concomitant]
     Active Substance: OXYCODONE
     Dosage: 10 MG
  5. NIRAPARIB [Suspect]
     Active Substance: NIRAPARIB
     Indication: ADENOCARCINOMA PANCREAS
     Dosage: 100 MG, QD
     Route: 048
     Dates: start: 20201005, end: 20201026
  6. PREDNISONE TABLET [Concomitant]
     Active Substance: PREDNISONE
     Dosage: 10 MG
     Route: 042
  7. DOSTARLIMAB [Suspect]
     Active Substance: DOSTARLIMAB
     Indication: ADENOCARCINOMA PANCREAS
     Dosage: 500 MG, CYC-EVERY 3 WEEKS
     Route: 042
     Dates: start: 20201207, end: 20201207
  8. DEXTROSE. [Concomitant]
     Active Substance: DEXTROSE
     Dosage: 0-25G
  9. INSULIN LISPRO [Concomitant]
     Active Substance: INSULIN LISPRO
     Dosage: 0-6  UNIT
  10. PANTOPRAZOLE [Concomitant]
     Active Substance: PANTOPRAZOLE
     Dosage: 40 MG

REACTIONS (1)
  - Ischaemic stroke [Unknown]

NARRATIVE: CASE EVENT DATE: 20201221
